APPROVED DRUG PRODUCT: ARIPIPRAZOLE
Active Ingredient: ARIPIPRAZOLE
Strength: 20MG
Dosage Form/Route: TABLET;ORAL
Application: A090472 | Product #005
Applicant: ZYDUS PHARMACEUTICALS USA INC
Approved: Jan 7, 2019 | RLD: No | RS: No | Type: DISCN